FAERS Safety Report 8494073-7 (Version None)
Quarter: 2012Q2

REPORT INFORMATION
  Report Type: 
  Country: None (occurrence: None)
  Receive Date: 20120629
  Receipt Date: 20120629
  Transmission Date: 20120825
  Serious: No
  Sender: FDA-Public Use
  Company Number: None

PATIENT
  Sex: Female
  Weight: 90.7194 kg

DRUGS (2)
  1. DARVOCET [Suspect]
     Indication: PAIN
     Dosage: 100/650 MG AS NEEDED TABLET
     Dates: start: 20010926, end: 20070327
  2. DARVOCET [Suspect]
     Indication: ARTHRITIS
     Dosage: 100/650 MG AS NEEDED TABLET
     Dates: start: 20010926, end: 20070327

REACTIONS (13)
  - DIZZINESS [None]
  - NAUSEA [None]
  - HEART VALVE INCOMPETENCE [None]
  - SEDATION [None]
  - VOMITING [None]
  - ISCHAEMIA [None]
  - CHEST PAIN [None]
  - ARRHYTHMIA SUPRAVENTRICULAR [None]
  - VENTRICULAR ARRHYTHMIA [None]
  - CARDIOTOXICITY [None]
  - HEART RATE IRREGULAR [None]
  - PALPITATIONS [None]
  - BLOOD PRESSURE INADEQUATELY CONTROLLED [None]
